FAERS Safety Report 7248598-2 (Version None)
Quarter: 2011Q1

REPORT INFORMATION
  Report Type: 
  Country: None (occurrence: None)
  Receive Date: 20110128
  Receipt Date: 20110103
  Transmission Date: 20110831
  Serious: Yes (Death)
  Sender: FDA-Public Use
  Company Number: US-BAYER-2011-001404

PATIENT
  Age: 21 Year
  Sex: Male

DRUGS (3)
  1. ACETYLSALICYLIC ACID + METHOCARBAMOL [Suspect]
     Route: 048
  2. METHADONE [Suspect]
     Route: 048
  3. NAPROXEN SODIUM [Suspect]
     Route: 048

REACTIONS (3)
  - CARDIAC ARREST [None]
  - RESPIRATORY ARREST [None]
  - COMPLETED SUICIDE [None]
